FAERS Safety Report 8577121-5 (Version None)
Quarter: 2012Q3

REPORT INFORMATION
  Report Type: 
  Country: None (occurrence: None)
  Receive Date: 20120807
  Receipt Date: 20120731
  Transmission Date: 20120928
  Serious: Yes (Hospitalization)
  Sender: FDA-Public Use
  Company Number: FR-TEVA-351131ISR

PATIENT
  Sex: Female

DRUGS (8)
  1. POLERY ADULT, SYRUP (NON TEVA DRUG) [Suspect]
     Indication: BRONCHITIS
     Route: 048
     Dates: start: 20110126, end: 20110127
  2. LAMALINE (NON TEVA DRUG) [Suspect]
     Indication: BRONCHITIS
     Route: 065
     Dates: start: 20110126, end: 20110127
  3. SYMBICORT TURBUHALER (NON TEVA DRUG) [Concomitant]
     Route: 055
  4. SPIRIVA (NON TEVA DRUG) [Concomitant]
     Route: 055
  5. TEMERIT 5 MG (NON TEVA DRUG) [Concomitant]
     Route: 048
  6. CLARITHROMYCIN [Suspect]
     Indication: BRONCHITIS
     Route: 048
     Dates: start: 20110126, end: 20110127
  7. SOLUPRED (NON TEVA DRUG) [Concomitant]
     Indication: BRONCHITIS
     Route: 048
     Dates: start: 20110126, end: 20110127
  8. AXELER (NON TEVA DRUG) [Concomitant]
     Route: 048

REACTIONS (3)
  - ERYTHEMA [None]
  - SKIN TEST NEGATIVE [None]
  - DYSPNOEA [None]
